FAERS Safety Report 10741986 (Version 3)
Quarter: 2015Q2

REPORT INFORMATION
  Report Type: Spontaneous
  Country: US (occurrence: US)
  Receive Date: 20150127
  Receipt Date: 20150507
  Transmission Date: 20150821
  Serious: Yes (Hospitalization, Other)
  Sender: FDA-Public Use
  Company Number: US-PFIZER INC-2015032032

PATIENT
  Age: 45 Year
  Sex: Male

DRUGS (13)
  1. DEPO-TESTOSTERONE [Suspect]
     Active Substance: TESTOSTERONE CYPIONATE
     Indication: LIBIDO DECREASED
  2. ANDROGEL [Suspect]
     Active Substance: TESTOSTERONE
     Indication: LETHARGY
     Dosage: UNK
     Dates: start: 2007, end: 2008
  3. DEPO-TESTOSTERONE [Suspect]
     Active Substance: TESTOSTERONE CYPIONATE
     Indication: BLOOD TESTOSTERONE DECREASED
     Dosage: UNK
     Dates: start: 20060101, end: 20110101
  4. DEPO-TESTOSTERONE [Suspect]
     Active Substance: TESTOSTERONE CYPIONATE
     Indication: LETHARGY
  5. DEPO-TESTOSTERONE [Suspect]
     Active Substance: TESTOSTERONE CYPIONATE
     Indication: FATIGUE
  6. TESTOSTERONE CIPIONATE [Suspect]
     Active Substance: TESTOSTERONE
     Indication: LETHARGY
     Dosage: UNK, EVERY 2 WEEKS
     Dates: start: 2008, end: 2010
  7. ANDROGEL [Suspect]
     Active Substance: TESTOSTERONE
     Indication: FATIGUE
  8. TESTOSTERONE CIPIONATE [Suspect]
     Active Substance: TESTOSTERONE
     Indication: FATIGUE
  9. TESTOSTERONE CIPIONATE [Suspect]
     Active Substance: TESTOSTERONE
     Indication: LIBIDO DECREASED
  10. TESTOSTERONE CIPIONATE [Suspect]
     Active Substance: TESTOSTERONE
     Indication: HORMONE REPLACEMENT THERAPY
  11. ANDROGEL [Suspect]
     Active Substance: TESTOSTERONE
     Indication: LIBIDO DECREASED
  12. DEPO-TESTOSTERONE [Suspect]
     Active Substance: TESTOSTERONE CYPIONATE
     Indication: HORMONE REPLACEMENT THERAPY
     Dosage: UNK, EVERY 2 WEEKS
     Dates: start: 2008
  13. ANDROGEL [Suspect]
     Active Substance: TESTOSTERONE
     Indication: HORMONE REPLACEMENT THERAPY

REACTIONS (2)
  - Myocardial infarction [Unknown]
  - Cerebrovascular accident [Recovering/Resolving]

NARRATIVE: CASE EVENT DATE: 20080830
